FAERS Safety Report 14850184 (Version 1)
Quarter: 2018Q2

REPORT INFORMATION
  Report Type: Spontaneous
  Country: IE (occurrence: IE)
  Receive Date: 20180505
  Receipt Date: 20180505
  Transmission Date: 20180711
  Serious: Yes (Disabling)
  Sender: FDA-Public Use
  Company Number: IE-TEVA-2018-IE-887492

PATIENT
  Age: 78 Year
  Sex: Male

DRUGS (3)
  1. METFORMIN [Suspect]
     Active Substance: METFORMIN HYDROCHLORIDE
     Indication: TYPE 2 DIABETES MELLITUS
     Dosage: 1/52
     Route: 048
     Dates: start: 20180220, end: 20180227
  2. LEXOTAN [Concomitant]
     Active Substance: BROMAZEPAM
     Dates: start: 20080101, end: 20180227
  3. ROSUVASTATIN TEVA [Concomitant]
     Active Substance: ROSUVASTATIN
     Dates: start: 20130101, end: 20180227

REACTIONS (5)
  - Dizziness [Recovered/Resolved]
  - Vertigo [Recovered/Resolved]
  - Nausea [Recovered/Resolved]
  - Vomiting [Recovered/Resolved]
  - Disorientation [Recovered/Resolved]

NARRATIVE: CASE EVENT DATE: 20180227
